FAERS Safety Report 4524147-4 (Version None)
Quarter: 2004Q4

REPORT INFORMATION
  Report Type: 
  Country: None (occurrence: None)
  Receive Date: 20041209
  Receipt Date: 20041125
  Transmission Date: 20050328
  Serious: Yes (Death)
  Sender: FDA-Public Use
  Company Number: 2004AP03790

PATIENT
  Age: 75 Year
  Sex: Male

DRUGS (7)
  1. IRESSA [Suspect]
     Indication: NON-SMALL CELL LUNG CANCER
     Dosage: 250 MG DAILY PO
     Route: 048
     Dates: start: 20031224, end: 20040324
  2. IRESSA [Suspect]
     Indication: SQUAMOUS CELL CARCINOMA
     Dosage: 250 MG DAILY PO
     Route: 048
     Dates: start: 20031224, end: 20040324
  3. IRESSA [Suspect]
     Indication: NON-SMALL CELL LUNG CANCER
     Dosage: 250 MG Q3D PO
     Route: 048
     Dates: start: 20040629, end: 20040709
  4. IRESSA [Suspect]
     Indication: SQUAMOUS CELL CARCINOMA
     Dosage: 250 MG Q3D PO
     Route: 048
     Dates: start: 20040629, end: 20040709
  5. RADIATION THERAPY [Concomitant]
  6. DOCETAXEL [Concomitant]
  7. CARBOPLATIN [Concomitant]

REACTIONS (4)
  - DRUG INEFFECTIVE [None]
  - INTERSTITIAL LUNG DISEASE [None]
  - SKIN DISCOLOURATION [None]
  - SKIN DISORDER [None]
